FAERS Safety Report 25328935 (Version 1)
Quarter: 2025Q2

REPORT INFORMATION
  Report Type: Spontaneous
  Country: US (occurrence: US)
  Receive Date: 20250519
  Receipt Date: 20250519
  Transmission Date: 20250716
  Serious: Yes (Other)
  Sender: NOVO NORDISK
  Company Number: US-NOVOPROD-1427923

PATIENT
  Age: 37 Year
  Sex: Female

DRUGS (8)
  1. WEGOVY [Suspect]
     Active Substance: SEMAGLUTIDE
     Indication: Obesity
     Route: 058
  2. WEGOVY [Suspect]
     Active Substance: SEMAGLUTIDE
     Indication: Thyroid disorder
     Route: 058
  3. WEGOVY [Suspect]
     Active Substance: SEMAGLUTIDE
     Indication: Thyroid disorder
     Dosage: 2.4 MG, QW
     Route: 058
     Dates: start: 20250505
  4. WEGOVY [Suspect]
     Active Substance: SEMAGLUTIDE
     Indication: Obesity
     Dosage: 2.4 MG, QW
     Route: 058
     Dates: start: 202309, end: 20240222
  5. WEGOVY [Suspect]
     Active Substance: SEMAGLUTIDE
     Indication: Obesity
     Route: 058
  6. WEGOVY [Suspect]
     Active Substance: SEMAGLUTIDE
     Indication: Thyroid disorder
  7. WEGOVY [Suspect]
     Active Substance: SEMAGLUTIDE
     Indication: Obesity
     Route: 058
  8. WEGOVY [Suspect]
     Active Substance: SEMAGLUTIDE
     Indication: Thyroid disorder

REACTIONS (7)
  - Breast cancer stage I [Recovered/Resolved]
  - Hunger [Unknown]
  - Decreased appetite [Unknown]
  - Weight loss poor [Unknown]
  - Injection site haemorrhage [Unknown]
  - Injection site mass [Unknown]
  - Off label use [Unknown]

NARRATIVE: CASE EVENT DATE: 20240229
